FAERS Safety Report 6892031-7 (Version None)
Quarter: 2010Q3

REPORT INFORMATION
  Report Type: 
  Country: None (occurrence: None)
  Receive Date: 20100731
  Receipt Date: 20071228
  Transmission Date: 20110219
  Serious: No
  Sender: FDA-Public Use
  Company Number: US-PFIZER INC-2008000154

PATIENT
  Sex: Male

DRUGS (4)
  1. NEURONTIN [Suspect]
     Indication: NEUROPATHY PERIPHERAL
     Dates: start: 20071101, end: 20071216
  2. NEXIUM [Concomitant]
  3. BENICAR [Concomitant]
  4. PROPAFENONE [Concomitant]

REACTIONS (1)
  - DRY MOUTH [None]
